FAERS Safety Report 9499070 (Version 1)
Quarter: 2013Q3

REPORT INFORMATION
  Report Type: Spontaneous
  Country: US (occurrence: US)
  Receive Date: 20130904
  Receipt Date: 20130904
  Transmission Date: 20140515
  Serious: No
  Sender: FDA-Public Use
  Company Number: US-TEVA-428293USA

PATIENT
  Age: 50 Year
  Sex: Male
  Weight: 85.81 kg

DRUGS (3)
  1. NUVIGIL [Suspect]
     Indication: SLEEP APNOEA SYNDROME
     Dosage: 125 MILLIGRAM DAILY;
     Route: 048
     Dates: start: 201302
  2. NEXIUM [Concomitant]
     Indication: GASTROOESOPHAGEAL REFLUX DISEASE
  3. MULTIVITAMIN [Concomitant]

REACTIONS (1)
  - Drug ineffective [Unknown]
